FAERS Safety Report 6740820-1 (Version None)
Quarter: 2010Q2

REPORT INFORMATION
  Report Type: 
  Country: None (occurrence: None)
  Receive Date: 20100525
  Receipt Date: 20100525
  Transmission Date: 20101027
  Serious: Yes (Life-Threatening)
  Sender: FDA-Public Use
  Company Number: None

PATIENT

DRUGS (1)
  1. ADENOSINE [Suspect]
     Indication: VENTRICULAR TACHYCARDIA
     Dates: start: 20100523, end: 20100523

REACTIONS (2)
  - DEVICE OCCLUSION [None]
  - TACHYCARDIA [None]
